FAERS Safety Report 11149123 (Version 1)
Quarter: 2015Q2

REPORT INFORMATION
  Report Type: Spontaneous
  Country: BR (occurrence: BR)
  Receive Date: 20150529
  Receipt Date: 20150529
  Transmission Date: 20150821
  Serious: Yes (Other)
  Sender: FDA-Public Use
  Company Number: BR-BAYER-2015-277687

PATIENT
  Age: 17 Year
  Sex: Female

DRUGS (2)
  1. GYNERA [Suspect]
     Active Substance: ETHINYL ESTRADIOL\GESTODENE
     Indication: CONTRACEPTION
     Dosage: UNK
     Route: 048
     Dates: start: 1994
  2. YASMIN [Suspect]
     Active Substance: DROSPIRENONE\ETHINYL ESTRADIOL
     Indication: CONTRACEPTION
     Dosage: 1 DF, QD
     Route: 048
     Dates: start: 2006

REACTIONS (8)
  - Weight increased [Recovered/Resolved]
  - Drug withdrawal headache [Recovered/Resolved]
  - Expired product administered [None]
  - Intracranial pressure increased [None]
  - Drug withdrawal headache [Recovered/Resolved]
  - Off label use [None]
  - Breast swelling [Recovered/Resolved]
  - Swelling [Recovered/Resolved]

NARRATIVE: CASE EVENT DATE: 1994
